FAERS Safety Report 15543208 (Version 2)
Quarter: 2018Q4

REPORT INFORMATION
  Report Type: Spontaneous
  Country: BE (occurrence: BE)
  Receive Date: 20181023
  Receipt Date: 20181109
  Transmission Date: 20190205
  Serious: Yes (Hospitalization, Other)
  Sender: FDA-Public Use
  Company Number: BE-PFIZER INC-2018427609

PATIENT

DRUGS (5)
  1. UTROGESTAN VAGINAL [Concomitant]
     Dosage: 200 MG, UNK
     Route: 065
  2. DAFALGAN [Concomitant]
     Active Substance: ACETAMINOPHEN
     Dosage: 1 G, UNK
     Route: 065
  3. METHOTREXATE SODIUM. [Suspect]
     Active Substance: METHOTREXATE SODIUM
     Indication: PNEUMONIA
     Dosage: UNK
     Route: 065
     Dates: start: 2008
  4. OLUMIANT [Interacting]
     Active Substance: BARICITINIB
     Indication: RHEUMATOID ARTHRITIS
     Dosage: 4 MG, 1X/DAY
     Route: 048
     Dates: start: 20180608, end: 20180829
  5. FELDENE [Concomitant]
     Active Substance: PIROXICAM
     Dosage: 10 MG, UNK
     Route: 065

REACTIONS (3)
  - Drug interaction [Unknown]
  - Alveolitis allergic [Recovering/Resolving]
  - Pneumonia [Recovering/Resolving]
